FAERS Safety Report 7845002-8 (Version None)
Quarter: 2011Q4

REPORT INFORMATION
  Report Type: 
  Country: None (occurrence: None)
  Receive Date: 20111018
  Receipt Date: 20111011
  Transmission Date: 20120403
  Serious: Yes (Hospitalization)
  Sender: FDA-Public Use
  Company Number: 2009-200921-NL

PATIENT
  Age: 26 Year
  Sex: Female
  Weight: 113.4 kg

DRUGS (1)
  1. NUVARING [Suspect]
     Indication: PRODUCT USED FOR UNKNOWN INDICATION
     Dates: start: 20070613, end: 20070701

REACTIONS (18)
  - OVARIAN CYST RUPTURED [None]
  - VOMITING [None]
  - PREGNANCY [None]
  - PROCEDURAL VOMITING [None]
  - MUSCULOSKELETAL CHEST PAIN [None]
  - WHITE BLOOD CELL COUNT INCREASED [None]
  - INTERNATIONAL NORMALISED RATIO INCREASED [None]
  - MATERNAL EXPOSURE BEFORE PREGNANCY [None]
  - HAEMOGLOBIN DECREASED [None]
  - HAEMORRHAGE [None]
  - PERIPHERAL EMBOLISM [None]
  - HYPOKALAEMIA [None]
  - URINE OUTPUT DECREASED [None]
  - PULMONARY EMBOLISM [None]
  - HAEMATOCRIT DECREASED [None]
  - SINUSITIS [None]
  - VAGINITIS BACTERIAL [None]
  - URINARY TRACT INFECTION [None]
